FAERS Safety Report 18390171 (Version 2)
Quarter: 2020Q4

REPORT INFORMATION
  Report Type: Report from Study
  Country: CA (occurrence: CA)
  Receive Date: 20201015
  Receipt Date: 20201021
  Transmission Date: 20210114
  Serious: Yes (Hospitalization)
  Sender: FDA-Public Use
  Company Number: CA-ULTRAGENYX PHARMACEUTICAL INC.-CA-UGNX-20-00198

PATIENT
  Weight: 31.2 kg

DRUGS (2)
  1. TRIHEPTANOIN. [Suspect]
     Active Substance: TRIHEPTANOIN
     Dates: end: 20200928
  2. TRIHEPTANOIN. [Suspect]
     Active Substance: TRIHEPTANOIN
     Indication: VERY LONG-CHAIN ACYL-COENZYME A DEHYDROGENASE DEFICIENCY
     Dosage: 2.8 GR/DOSE
     Dates: start: 20170518

REACTIONS (2)
  - Myalgia [Recovered/Resolved]
  - Blood creatine phosphokinase increased [Recovered/Resolved]

NARRATIVE: CASE EVENT DATE: 20200928
